FAERS Safety Report 16382162 (Version 2)
Quarter: 2019Q2

REPORT INFORMATION
  Report Type: Spontaneous
  Country: JP (occurrence: JP)
  Receive Date: 20190603
  Receipt Date: 20190618
  Transmission Date: 20190711
  Serious: Yes (Hospitalization)
  Sender: FDA-Public Use
  Company Number: JP-ELI_LILLY_AND_COMPANY-JP201905013640

PATIENT
  Age: 62 Year
  Sex: Male

DRUGS (3)
  1. FASTIC [Concomitant]
     Active Substance: NATEGLINIDE
     Indication: TYPE 2 DIABETES MELLITUS
     Dosage: 90 MG, TID
     Route: 048
  2. TRULICITY [Suspect]
     Active Substance: DULAGLUTIDE
     Indication: TYPE 2 DIABETES MELLITUS
     Dosage: 0.75 MG, WEEKLY (1/W)
     Route: 058
     Dates: start: 20190519
  3. LUSEFI [Concomitant]
     Active Substance: LUSEOGLIFLOZIN
     Indication: TYPE 2 DIABETES MELLITUS
     Dosage: 2.5 MG, DAILY
     Route: 048

REACTIONS (1)
  - Dizziness [Recovered/Resolved]

NARRATIVE: CASE EVENT DATE: 20190524
